FAERS Safety Report 22887829 (Version 2)
Quarter: 2024Q3

REPORT INFORMATION
  Report Type: Spontaneous
  Country: RU (occurrence: RU)
  Receive Date: 20230831
  Receipt Date: 20240710
  Transmission Date: 20241017
  Serious: No
  Sender: ROCHE
  Company Number: RU-ROCHE-3413420

PATIENT
  Sex: Male

DRUGS (1)
  1. ALECTINIB [Suspect]
     Active Substance: ALECTINIB
     Indication: Non-small cell lung cancer
     Route: 065

REACTIONS (2)
  - Off label use [Unknown]
  - No adverse event [Unknown]
